FAERS Safety Report 11116131 (Version 1)
Quarter: 2015Q2

REPORT INFORMATION
  Report Type: Spontaneous
  Country: US (occurrence: None)
  Receive Date: 20150514
  Receipt Date: 20150514
  Transmission Date: 20150821
  Serious: Yes (Disabling)
  Sender: FDA-Public Use
  Company Number: None

PATIENT
  Age: 60 Year
  Sex: Female

DRUGS (2)
  1. MYCOPHENOLATE [Suspect]
     Active Substance: MYCOPHENOLIC ACID
     Indication: ALOPECIA
     Route: 048
     Dates: start: 20150106, end: 20150223
  2. MYCOPHENOLATE [Suspect]
     Active Substance: MYCOPHENOLIC ACID
     Indication: RASH
     Route: 048
     Dates: start: 20150106, end: 20150223

REACTIONS (8)
  - Furuncle [None]
  - Haemorrhage [None]
  - Skin discolouration [None]
  - Herpes zoster [None]
  - Alopecia [None]
  - Pruritus genital [None]
  - Skin exfoliation [None]
  - Arthropathy [None]

NARRATIVE: CASE EVENT DATE: 20150225
